FAERS Safety Report 15882996 (Version 2)
Quarter: 2021Q3

REPORT INFORMATION
  Report Type: Spontaneous
  Country: US (occurrence: US)
  Receive Date: 20190129
  Receipt Date: 20210727
  Transmission Date: 20211014
  Serious: Yes (Hospitalization, Other)
  Sender: FDA-Public Use
  Company Number: US-MACLEODS PHARMACEUTICALS US LTD-MAC2019019771

PATIENT

DRUGS (5)
  1. DESVENLAFAXINE. [Concomitant]
     Active Substance: DESVENLAFAXINE
     Indication: GENERALISED ANXIETY DISORDER
     Dosage: 50 MILLIGRAM, QD
     Route: 065
  2. TRAMADOL 50 MG [Suspect]
     Active Substance: TRAMADOL
     Indication: COCCYDYNIA
     Dosage: 50 MILLIGRAM, PRN, 50 MG EVERY 8 HOURS AS NEEDED (MAXIMUM 100 MG/D)
     Route: 065
  3. HYDROXYZINE [Concomitant]
     Active Substance: HYDROXYZINE HYDROCHLORIDE
     Indication: ANXIETY
     Dosage: 25 MILLIGRAM, PRN, AS NECESSARY
     Route: 065
  4. FOLIC ACID. [Concomitant]
     Active Substance: FOLIC ACID
     Indication: VITAMIN SUPPLEMENTATION
     Dosage: 1 MILLIGRAM, QD
     Route: 065
  5. THIAMINE. [Concomitant]
     Active Substance: THIAMINE
     Indication: VITAMIN SUPPLEMENTATION
     Dosage: 100 MILLIGRAM, QD
     Route: 065

REACTIONS (1)
  - Hyponatraemia [Recovering/Resolving]
